FAERS Safety Report 9183987 (Version 1)
Quarter: 2013Q1

REPORT INFORMATION
  Report Type: Spontaneous
  Country: US (occurrence: US)
  Receive Date: 20130322
  Receipt Date: 20130322
  Transmission Date: 20140127
  Serious: Yes (Other)
  Sender: FDA-Public Use
  Company Number: US-BRISTOL-MYERS SQUIBB COMPANY-16686990

PATIENT
  Age: 65 Year
  Sex: Male
  Weight: 81.63 kg

DRUGS (4)
  1. ERBITUX [Suspect]
     Indication: OROPHARYNGEAL CANCER
     Dosage: MOST RECENT DOSE:13JUN2012,LOADING DOSE: 797MG?NO OF INFUSION:3
     Route: 042
     Dates: start: 20120530
  2. TYLENOL [Concomitant]
     Route: 048
  3. DEXAMETHASONE [Concomitant]
     Route: 042
  4. DEMEROL [Concomitant]
     Dosage: ONCE
     Route: 042

REACTIONS (4)
  - Infusion related reaction [Recovered/Resolved]
  - Rash [Unknown]
  - Fatigue [Unknown]
  - Anaemia [Unknown]
